FAERS Safety Report 7533647-4 (Version None)
Quarter: 2011Q2

REPORT INFORMATION
  Report Type: 
  Country: None (occurrence: None)
  Receive Date: 20110608
  Receipt Date: 20060405
  Transmission Date: 20111010
  Serious: Yes (Hospitalization, Other)
  Sender: FDA-Public Use
  Company Number: PHFR2006GB01372

PATIENT
  Sex: Male

DRUGS (1)
  1. CLOZAPINE [Suspect]
     Indication: SCHIZOPHRENIA
     Route: 048
     Dates: start: 20041104

REACTIONS (7)
  - HEPATITIS B [None]
  - PYREXIA [None]
  - OEDEMA PERIPHERAL [None]
  - GAMMA-GLUTAMYLTRANSFERASE INCREASED [None]
  - ALANINE AMINOTRANSFERASE INCREASED [None]
  - CIRCULATORY COLLAPSE [None]
  - BLOOD ALKALINE PHOSPHATASE INCREASED [None]
